FAERS Safety Report 4892292-X (Version None)
Quarter: 2006Q1

REPORT INFORMATION
  Report Type: 
  Country: None (occurrence: None)
  Receive Date: 20060125
  Receipt Date: 20060125
  Transmission Date: 20060701
  Serious: Yes (Hospitalization)
  Sender: FDA-Public Use
  Company Number: None

PATIENT
  Sex: Female

DRUGS (9)
  1. WARFARIN [Suspect]
     Indication: THROMBOSIS PROPHYLAXIS
     Dosage: 35MG DAILY ORAL
     Route: 048
     Dates: end: 20050910
  2. AMIODARONE HCL [Concomitant]
  3. HYDROCHLOROTHIAZIDE [Concomitant]
  4. ASPIRIN [Concomitant]
  5. LESCOL [Concomitant]
  6. ZANTAC [Concomitant]
  7. DILANTIN [Concomitant]
  8. TIMOLOL MALEATE [Concomitant]
  9. XALATAN [Concomitant]

REACTIONS (1)
  - GASTROINTESTINAL HAEMORRHAGE [None]
